FAERS Safety Report 5429809-2 (Version None)
Quarter: 2007Q3

REPORT INFORMATION
  Report Type: 
  Country: None (occurrence: None)
  Receive Date: 20070829
  Receipt Date: 20070817
  Transmission Date: 20080115
  Serious: Yes (Other)
  Sender: FDA-Public Use
  Company Number: US-PFIZER INC-2007069269

PATIENT
  Sex: Male
  Weight: 111.1 kg

DRUGS (10)
  1. CHANTIX [Suspect]
     Indication: SMOKING CESSATION THERAPY
     Dates: start: 20070401, end: 20070801
  2. ASPIRIN [Concomitant]
  3. LANTUS [Concomitant]
  4. ACTOS [Concomitant]
  5. ZETIA [Concomitant]
  6. ALTACE [Concomitant]
  7. METFORMIN [Concomitant]
  8. GLIPIZIDE [Concomitant]
  9. BYETTA [Concomitant]
  10. ZOCOR [Concomitant]

REACTIONS (4)
  - AGEUSIA [None]
  - ANOSMIA [None]
  - BLOOD CREATININE INCREASED [None]
  - DRUG DOSE OMISSION [None]
